FAERS Safety Report 8374381-0 (Version None)
Quarter: 2012Q2

REPORT INFORMATION
  Report Type: 
  Country: None (occurrence: None)
  Receive Date: 20120521
  Receipt Date: 20120514
  Transmission Date: 20120825
  Serious: Yes (Other)
  Sender: FDA-Public Use
  Company Number: BR-ABBOTT-11P-020-0872221-00

PATIENT
  Age: 68 Year
  Sex: Female

DRUGS (3)
  1. ARAVA [Concomitant]
     Indication: PRODUCT USED FOR UNKNOWN INDICATION
     Dosage: 20 MG DAILY
  2. HUMIRA [Suspect]
     Indication: RHEUMATOID ARTHRITIS
     Route: 058
     Dates: start: 20100901
  3. GLUCOSAMINE SULFATE [Concomitant]
     Indication: PRODUCT USED FOR UNKNOWN INDICATION

REACTIONS (5)
  - ISCHAEMIC STROKE [None]
  - TRANSVERSE SINUS THROMBOSIS [None]
  - PSYCHOMOTOR SKILLS IMPAIRED [None]
  - BALANCE DISORDER [None]
  - TRANSIENT ISCHAEMIC ATTACK [None]
